FAERS Safety Report 17163884 (Version 1)
Quarter: 2019Q4

REPORT INFORMATION
  Report Type: Spontaneous
  Country: JP (occurrence: JP)
  Receive Date: 20191217
  Receipt Date: 20191217
  Transmission Date: 20200122
  Serious: Yes (Hospitalization, Other)
  Sender: FDA-Public Use
  Company Number: NVSJ2019JP002101

PATIENT
  Age: 16 Year
  Sex: Male

DRUGS (3)
  1. NEORAL [Suspect]
     Active Substance: CYCLOSPORINE
     Indication: RENAL TRANSPLANT
     Dosage: UNK
     Route: 065
  2. SIMULECT [Suspect]
     Active Substance: BASILIXIMAB
     Indication: RENAL TRANSPLANT
     Dosage: UNK
     Route: 065
  3. MYCOPHENOLATE MOFETIL. [Concomitant]
     Active Substance: MYCOPHENOLATE MOFETIL
     Indication: RENAL TRANSPLANT
     Dosage: UNK
     Route: 065

REACTIONS (9)
  - Blood uric acid increased [Unknown]
  - Kidney transplant rejection [Recovered/Resolved]
  - Blood creatinine increased [Unknown]
  - Ureteric dilatation [Unknown]
  - Concomitant disease aggravated [Recovered/Resolved]
  - Haematuria [Unknown]
  - Renal impairment [Recovered/Resolved]
  - Ureterolithiasis [Recovered/Resolved]
  - Calculus urinary [Unknown]
